FAERS Safety Report 14525439 (Version 2)
Quarter: 2018Q1

REPORT INFORMATION
  Report Type: Spontaneous
  Country: US (occurrence: US)
  Receive Date: 20180213
  Receipt Date: 20180221
  Transmission Date: 20180509
  Serious: Yes (Life-Threatening, Hospitalization, Other)
  Sender: FDA-Public Use
  Company Number: US-DRREDDYS-USA/USA/18/0096219

PATIENT
  Age: 54 Year
  Sex: Female

DRUGS (4)
  1. DOXAZOSIN [Suspect]
     Active Substance: DOXAZOSIN\DOXAZOSIN MESYLATE
     Indication: SUICIDAL IDEATION
     Route: 065
  2. AMLODIPINE BESYLATE. [Suspect]
     Active Substance: AMLODIPINE BESYLATE
     Indication: SUICIDAL IDEATION
     Route: 065
  3. HYDROCHLOROTHIAZIDE. [Suspect]
     Active Substance: HYDROCHLOROTHIAZIDE
     Indication: SUICIDAL IDEATION
     Route: 065
  4. ATENOLOL. [Suspect]
     Active Substance: ATENOLOL
     Indication: SUICIDAL IDEATION
     Route: 065

REACTIONS (7)
  - Intentional overdose [Recovering/Resolving]
  - Pulmonary oedema [Recovered/Resolved]
  - Somnolence [Recovering/Resolving]
  - Abdominal pain [Recovering/Resolving]
  - Sinus bradycardia [Recovering/Resolving]
  - Hypotension [Recovering/Resolving]
  - Hypoglycaemia [Recovered/Resolved]
